FAERS Safety Report 24178668 (Version 1)
Quarter: 2024Q3

REPORT INFORMATION
  Report Type: Spontaneous
  Country: CN (occurrence: CN)
  Receive Date: 20240806
  Receipt Date: 20240806
  Transmission Date: 20241016
  Serious: No
  Sender: MERCK
  Company Number: CN-009507513-2407CHN014774

PATIENT
  Age: 71 Year
  Sex: Female
  Weight: 60.5 kg

DRUGS (1)
  1. LAGEVRIO [Suspect]
     Active Substance: MOLNUPIRAVIR
     Indication: Upper respiratory tract infection
     Dosage: 0.8 GRAM, BID
     Route: 048
     Dates: start: 20240705, end: 20240706

REACTIONS (2)
  - Rash erythematous [Recovering/Resolving]
  - Product use in unapproved indication [Unknown]

NARRATIVE: CASE EVENT DATE: 20240705
